FAERS Safety Report 10038811 (Version 2)
Quarter: 2014Q2

REPORT INFORMATION
  Report Type: Spontaneous
  Country: US (occurrence: US)
  Receive Date: 20140326
  Receipt Date: 20140415
  Transmission Date: 20141212
  Serious: Yes (Hospitalization)
  Sender: FDA-Public Use
  Company Number: US-GLAXOSMITHKLINE-A1065845A

PATIENT
  Age: 72 Year
  Sex: Male

DRUGS (3)
  1. ADVAIR [Suspect]
     Indication: DYSPNOEA
     Dosage: 1PUFF TWICE PER DAY
     Route: 055
     Dates: start: 2010, end: 20140327
  2. VENTOLIN HFA [Concomitant]
  3. COMBIVENT [Concomitant]

REACTIONS (11)
  - Jaw fracture [Recovering/Resolving]
  - Rib fracture [Recovering/Resolving]
  - Contusion [Recovering/Resolving]
  - Head injury [Recovering/Resolving]
  - Brain injury [Recovering/Resolving]
  - Gait disturbance [Recovering/Resolving]
  - Accident [Unknown]
  - Fall [Recovering/Resolving]
  - Traumatic lung injury [Recovering/Resolving]
  - Haemoptysis [Recovering/Resolving]
  - Dysphonia [Recovering/Resolving]
